FAERS Safety Report 17412352 (Version 1)
Quarter: 2020Q1

REPORT INFORMATION
  Report Type: Spontaneous
  Country: US (occurrence: US)
  Receive Date: 20200212
  Receipt Date: 20200212
  Transmission Date: 20200409
  Serious: No
  Sender: FDA-Public Use
  Company Number: None

PATIENT
  Age: 75 Year
  Sex: Female
  Weight: 66.6 kg

DRUGS (3)
  1. PINDOLOL. [Concomitant]
     Active Substance: PINDOLOL
  2. ASPIRIN. [Concomitant]
     Active Substance: ASPIRIN
  3. ACYCLOVIR OINTMENT [Suspect]
     Active Substance: ACYCLOVIR
     Indication: ORAL HERPES
     Dosage: ?          QUANTITY:1 APPLICATION;OTHER FREQUENCY:6 TIMES A DAY;?
     Route: 061

REACTIONS (2)
  - Product substitution issue [None]
  - Drug ineffective [None]

NARRATIVE: CASE EVENT DATE: 20200211
